FAERS Safety Report 6296203-4 (Version None)
Quarter: 2009Q3

REPORT INFORMATION
  Report Type: 
  Country: None (occurrence: None)
  Receive Date: 20090804
  Receipt Date: 20090728
  Transmission Date: 20100115
  Serious: Yes (Hospitalization)
  Sender: FDA-Public Use
  Company Number: US-JNJFOC-20090702873

PATIENT
  Sex: Male

DRUGS (8)
  1. FENTANYL TRANSDERMAL SYSTEM [Suspect]
     Indication: PAIN
     Dosage: 50UG/HR Q48 HOURS
     Route: 062
  2. OXYCODONE [Concomitant]
     Route: 065
  3. ABILIFY [Concomitant]
     Route: 065
  4. CLONAZEPAM [Concomitant]
     Route: 065
  5. FEXOFENADINE [Concomitant]
     Route: 065
  6. SINGULAIR [Concomitant]
     Route: 065
  7. CARBAMAZEPINE [Concomitant]
     Route: 065
  8. IBUPROFEN [Concomitant]
     Route: 065

REACTIONS (5)
  - DEVICE LEAKAGE [None]
  - HOSPITALISATION [None]
  - INAPPROPRIATE SCHEDULE OF DRUG ADMINISTRATION [None]
  - PRODUCT QUALITY ISSUE [None]
  - WRONG TECHNIQUE IN DRUG USAGE PROCESS [None]
